FAERS Safety Report 7674076-2 (Version None)
Quarter: 2011Q3

REPORT INFORMATION
  Report Type: 
  Country: None (occurrence: None)
  Receive Date: 20110810
  Receipt Date: 20110726
  Transmission Date: 20111222
  Serious: Yes (Other)
  Sender: FDA-Public Use
  Company Number: US-VALEANT-2011VX002179

PATIENT

DRUGS (3)
  1. OXALIPLATIN [Suspect]
     Route: 041
  2. LEUCOVORIN CALCIUM [Suspect]
     Route: 041
  3. FLUOROURACIL [Suspect]
     Route: 041

REACTIONS (7)
  - SPLENOMEGALY [None]
  - ASPARTATE AMINOTRANSFERASE INCREASED [None]
  - WHITE BLOOD CELL COUNT DECREASED [None]
  - ALANINE AMINOTRANSFERASE INCREASED [None]
  - LIVER FUNCTION TEST ABNORMAL [None]
  - BLOOD BILIRUBIN INCREASED [None]
  - PANCYTOPENIA [None]
